FAERS Safety Report 19003111 (Version 4)
Quarter: 2021Q3

REPORT INFORMATION
  Report Type: Spontaneous
  Country: NL (occurrence: NL)
  Receive Date: 20210312
  Receipt Date: 20210907
  Transmission Date: 20211014
  Serious: Yes (Hospitalization, Other)
  Sender: FDA-Public Use
  Company Number: NL-ROCHE-2772350

PATIENT
  Sex: Female

DRUGS (3)
  1. COTELLIC [Suspect]
     Active Substance: COBIMETINIB
     Indication: ROSAI-DORFMAN SYNDROME
  2. COTELLIC [Suspect]
     Active Substance: COBIMETINIB
     Indication: HISTIOCYTOSIS
     Route: 048
     Dates: start: 20201229
  3. DEXAMETHASONE. [Concomitant]
     Active Substance: DEXAMETHASONE

REACTIONS (9)
  - Asthma [Unknown]
  - Off label use [Unknown]
  - Cardiac failure [Unknown]
  - Weight increased [Unknown]
  - Gastric disorder [Unknown]
  - Pain [Unknown]
  - Cardiac disorder [Recovered/Resolved]
  - Anxiety [Unknown]
  - Wheezing [Unknown]

NARRATIVE: CASE EVENT DATE: 20210223
